FAERS Safety Report 21357461 (Version 1)
Quarter: 2022Q3

REPORT INFORMATION
  Report Type: Spontaneous
  Country: US (occurrence: US)
  Receive Date: 20220921
  Receipt Date: 20220921
  Transmission Date: 20221026
  Serious: Yes (Other)
  Sender: FDA-Public Use
  Company Number: US-STRIDES ARCOLAB LIMITED-2022SP007531

PATIENT
  Age: 21 Month
  Sex: Female

DRUGS (4)
  1. PREDNISOLONE [Suspect]
     Active Substance: PREDNISOLONE
     Indication: Rosai-Dorfman syndrome
     Dosage: 1 MILLIGRAM/KILOGRAM, PER DYA, SCHEDULED TO RECEIVE TREATMENT FOR 6 MONTHS
     Route: 065
  2. PREDNISOLONE [Suspect]
     Active Substance: PREDNISOLONE
     Dosage: UNK,DOSE TAPERED AND FINALLY STOPPED
     Route: 065
  3. METHOTREXATE [Suspect]
     Active Substance: METHOTREXATE
     Indication: Rosai-Dorfman syndrome
     Dosage: 20 MILLIGRAM/SQ. METER, ONCE A WEEK
     Route: 048
  4. MERCAPTOPURINE [Suspect]
     Active Substance: MERCAPTOPURINE
     Indication: Rosai-Dorfman syndrome
     Dosage: 50 MILLIGRAM/SQ. METER, PER DAY
     Route: 048

REACTIONS (3)
  - Drug ineffective [Unknown]
  - Behaviour disorder [Unknown]
  - Off label use [Unknown]
